FAERS Safety Report 4607505-9 (Version None)
Quarter: 2005Q1

REPORT INFORMATION
  Report Type: 
  Country: None (occurrence: None)
  Receive Date: 20050314
  Receipt Date: 20050228
  Transmission Date: 20050727
  Serious: Yes (Hospitalization, Disabling)
  Sender: FDA-Public Use
  Company Number: JP-JNJFOC-20041202813

PATIENT
  Sex: Female

DRUGS (5)
  1. ITRIZOLE [Suspect]
     Indication: CRYPTOCOCCOSIS
     Route: 049
     Dates: start: 20040219, end: 20041208
  2. PREDNISOLONE [Concomitant]
     Route: 065
     Dates: start: 20011105, end: 20041208
  3. MAGNESIUM OXIDE [Concomitant]
     Indication: CONSTIPATION
     Route: 065
     Dates: start: 20030101, end: 20041208
  4. LOXOPROFEN SODIUM [Concomitant]
     Route: 065
     Dates: start: 20030101, end: 20041208
  5. MISOPROSTOL [Concomitant]
     Indication: GASTRITIS ATROPHIC
     Route: 065
     Dates: start: 20030101, end: 20041208

REACTIONS (9)
  - CARDIAC FAILURE ACUTE [None]
  - CARDIAC FAILURE CONGESTIVE [None]
  - DILATATION VENTRICULAR [None]
  - EJECTION FRACTION DECREASED [None]
  - MALAISE [None]
  - MYOCARDITIS [None]
  - OXYGEN SATURATION DECREASED [None]
  - PULMONARY OEDEMA [None]
  - VENTRICULAR ASYSTOLE [None]
